FAERS Safety Report 6639187-9 (Version None)
Quarter: 2010Q1

REPORT INFORMATION
  Report Type: 
  Country: None (occurrence: None)
  Receive Date: 20100312
  Receipt Date: 20100304
  Transmission Date: 20100710
  Serious: Yes (Death)
  Sender: FDA-Public Use
  Company Number: 2010SP000352

PATIENT
  Age: 62 Year
  Sex: Female

DRUGS (7)
  1. REFLEX (MIRTAZAPINE /01293201/) [Suspect]
     Indication: DEPRESSED MOOD
     Dosage: 15 MG;QD;PO
     Route: 048
     Dates: start: 20091215, end: 20091217
  2. REFLEX (MIRTAZAPINE /01293201/) [Suspect]
     Indication: INSOMNIA
     Dosage: 15 MG;QD;PO
     Route: 048
     Dates: start: 20091215, end: 20091217
  3. SULPIRIDE (SULPIRIDE) [Suspect]
     Indication: DECREASED APPETITE
     Dosage: 300 MG;QD
     Dates: start: 20091215, end: 20091218
  4. SULPIRIDE (SULPIRIDE) [Suspect]
     Indication: DEPRESSED MOOD
     Dosage: 300 MG;QD
     Dates: start: 20091215, end: 20091218
  5. ZOLPIDEM TARTRATE [Concomitant]
  6. ETIZOLAM [Concomitant]
  7. CLOTIAZEPAM [Concomitant]

REACTIONS (1)
  - COMPLETED SUICIDE [None]
